FAERS Safety Report 21776172 (Version 3)
Quarter: 2023Q2

REPORT INFORMATION
  Report Type: Report from Study
  Country: GB (occurrence: GB)
  Receive Date: 20221226
  Receipt Date: 20230502
  Transmission Date: 20230721
  Serious: Yes (Hospitalization, Other)
  Sender: FDA-Public Use
  Company Number: GB-002147023-NVSC2022GB290399

PATIENT
  Age: 19 Year
  Sex: Male

DRUGS (2)
  1. HYRIMOZ [Suspect]
     Active Substance: ADALIMUMAB-ADAZ
     Indication: Psoriasis
     Dosage: 40 MG, Q2W (SANDOZ LTD) 2-PRE FILLED DISPOSABLE INJECTION
     Route: 058
     Dates: start: 20221202
  2. HYRIMOZ [Suspect]
     Active Substance: ADALIMUMAB-ADAZ
     Dosage: UNK
     Route: 065

REACTIONS (3)
  - Viral infection [Recovered/Resolved]
  - Immunodeficiency [Unknown]
  - Lower respiratory tract infection [Unknown]
